FAERS Safety Report 4687918-X (Version None)
Quarter: 2005Q2

REPORT INFORMATION
  Report Type: 
  Country: None (occurrence: None)
  Receive Date: 20050610
  Receipt Date: 20050531
  Transmission Date: 20051028
  Serious: Yes (Other)
  Sender: FDA-Public Use
  Company Number: CA-GLAXOSMITHKLINE-A0561913A

PATIENT
  Age: 33 Year
  Sex: Male

DRUGS (6)
  1. PAXIL [Suspect]
     Indication: DRUG USE FOR UNKNOWN INDICATION
     Dosage: 20MG PER DAY
     Route: 048
  2. NOVO-BROMAZEPAM [Suspect]
     Dosage: 6MG PER DAY
     Route: 048
  3. SERTRALINE HCL [Suspect]
     Dosage: 50MG PER DAY
     Route: 048
  4. PONDOCILLIN [Suspect]
     Dosage: 500MG TWICE PER DAY
     Route: 048
  5. SOMNOL TAB [Suspect]
     Dosage: 30MG PER DAY
     Route: 048
  6. TEMAZEPAM [Suspect]
     Dosage: 30MG PER DAY
     Route: 048

REACTIONS (2)
  - DEPRESSED LEVEL OF CONSCIOUSNESS [None]
  - MEDICATION ERROR [None]
